FAERS Safety Report 7733491-9 (Version None)
Quarter: 2011Q3

REPORT INFORMATION
  Report Type: 
  Country: None (occurrence: None)
  Receive Date: 20110902
  Receipt Date: 20110902
  Transmission Date: 20111222
  Serious: Yes (Life-Threatening, Hospitalization, Disabling, Congenital Anomaly, Other)
  Sender: FDA-Public Use
  Company Number: None

PATIENT
  Age: 37 Year
  Sex: Female
  Weight: 130.6359 kg

DRUGS (2)
  1. ABILIFY [Suspect]
     Dosage: 10 MGRAMS 1 NIGHT 8:PM
  2. LATUDA [Suspect]
     Dosage: 40 MGRAMS 1 NIGHT 8:PM

REACTIONS (1)
  - PSYCHIATRIC EVALUATION [None]
